FAERS Safety Report 25364063 (Version 1)
Quarter: 2025Q2

REPORT INFORMATION
  Report Type: Spontaneous
  Country: CN (occurrence: CN)
  Receive Date: 20250527
  Receipt Date: 20250527
  Transmission Date: 20250717
  Serious: Yes (Life-Threatening)
  Sender: BAYER HEALTHCARE PHARMACEUTICALS INC.
  Company Number: CN-BAYER-2025A070215

PATIENT
  Age: 46 Year
  Sex: Female
  Weight: 70 kg

DRUGS (1)
  1. GLUCOBAY [Suspect]
     Active Substance: ACARBOSE
     Indication: Type 2 diabetes mellitus
     Dosage: 30 MG, TID
     Route: 048
     Dates: start: 20250521, end: 20250523

REACTIONS (4)
  - Blister [Recovered/Resolved]
  - Rash macular [Recovered/Resolved]
  - Respiratory rate increased [None]
  - Skin exfoliation [None]

NARRATIVE: CASE EVENT DATE: 20250522
